FAERS Safety Report 9125764 (Version 2)
Quarter: 2013Q1

REPORT INFORMATION
  Report Type: Spontaneous
  Country: US (occurrence: US)
  Receive Date: 20130227
  Receipt Date: 20130329
  Transmission Date: 20140127
  Serious: Yes (Death, Hospitalization)
  Sender: FDA-Public Use
  Company Number: GXBR2013US000640

PATIENT
  Age: 68 Year
  Sex: Male

DRUGS (2)
  1. ENOXAPARIN SODIUM [Suspect]
     Dosage: 100 MG, BID
     Dates: start: 2012
  2. ENOXAPARIN SODIUM [Suspect]
     Dosage: UNK MG, UNK
     Dates: start: 201301

REACTIONS (4)
  - Lung neoplasm malignant [Fatal]
  - Cardiac disorder [Fatal]
  - Pulmonary congestion [Fatal]
  - Malignant neoplasm progression [Fatal]
